FAERS Safety Report 8916670 (Version 2)
Quarter: 2012Q4

REPORT INFORMATION
  Report Type: 
  Country: JP (occurrence: JP)
  Receive Date: 20121120
  Receipt Date: 20121206
  Transmission Date: 20130627
  Serious: Yes (Hospitalization)
  Sender: FDA-Public Use
  Company Number: JP-ROCHE-1084025

PATIENT
  Age: 45 Year
  Sex: Male
  Weight: 78 kg

DRUGS (4)
  1. ACTEMRA [Suspect]
     Indication: CASTLEMAN^S DISEASE
     Route: 041
     Dates: start: 20120525, end: 20120817
  2. ACTEMRA [Suspect]
     Indication: CASTLEMAN^S DISEASE
     Route: 041
     Dates: start: 20120824
  3. TRUVADA [Concomitant]
     Indication: ACQUIRED IMMUNODEFICIENCY SYNDROME
     Dosage: It is 300mg as 200mg and the tenofovir disoproxil fumarates.  the emtricitabine
     Route: 048
     Dates: start: 20100326
  4. ISENTRESS [Concomitant]
     Indication: ACQUIRED IMMUNODEFICIENCY SYNDROME
     Route: 048
     Dates: start: 20100326

REACTIONS (4)
  - Sweat gland tumour [Not Recovered/Not Resolved]
  - Malaise [Not Recovered/Not Resolved]
  - Pyrexia [Not Recovered/Not Resolved]
  - Dysgeusia [Not Recovered/Not Resolved]
